FAERS Safety Report 24314745 (Version 1)
Quarter: 2024Q3

REPORT INFORMATION
  Report Type: Spontaneous
  Country: CA (occurrence: CA)
  Receive Date: 20240913
  Receipt Date: 20240913
  Transmission Date: 20241017
  Serious: Yes (Other)
  Sender: ROCHE
  Company Number: CA-ROCHE-10000072865

PATIENT
  Age: 72 Year
  Sex: Female

DRUGS (1)
  1. TRASTUZUMAB [Suspect]
     Active Substance: TRASTUZUMAB
     Indication: Breast cancer metastatic
     Route: 042

REACTIONS (3)
  - Cardiac dysfunction [Unknown]
  - Cardiac ventricular thrombosis [Unknown]
  - Ejection fraction decreased [Unknown]
